FAERS Safety Report 4627391-0 (Version None)
Quarter: 2005Q2

REPORT INFORMATION
  Report Type: 
  Country: None (occurrence: None)
  Receive Date: 20050405
  Receipt Date: 20050324
  Transmission Date: 20051028
  Serious: Yes (Death)
  Sender: FDA-Public Use
  Company Number: 163-20785-05030675

PATIENT
  Age: 73 Year
  Sex: Male
  Weight: 47 kg

DRUGS (8)
  1. THALOMID [Suspect]
     Indication: MULTIPLE MYELOMA
     Dosage: 100 MG, QHS, ORAL
     Route: 048
     Dates: start: 20041030
  2. MELPHALAN (MELPHALAN) [Suspect]
     Indication: MULTIPLE MYELOMA
     Dosage: 224 MG, 1 DAY, INTRAVENOUS
     Route: 042
     Dates: start: 20050120, end: 20050120
  3. DEXAMETHASONE [Suspect]
     Indication: MULTIPLE MYELOMA
     Dosage: 20 MG, 4 DAYS Q 21 DAYS, ORAL
     Route: 048
     Dates: start: 20041030
  4. VELCADE [Suspect]
     Indication: MULTIPLE MYELOMA
     Dosage: FOR 2 CYCLES
     Dates: start: 20041030
  5. CISPLATIN [Suspect]
     Indication: MULTIPLE MYELOMA
     Dosage: FOR 2 CYCLES
     Dates: start: 20041030
  6. ADRIAMYCIN PFS [Suspect]
     Indication: MULTIPLE MYELOMA
     Dosage: FOR 2 CYCLES
     Dates: start: 20041030
  7. CYCLOPHOSPHAMIDE [Suspect]
     Indication: MULTIPLE MYELOMA
     Dosage: FOR 2 CYCLES
     Dates: start: 20041030
  8. ETOPOSIDE [Suspect]
     Indication: MULTIPLE MYELOMA
     Dosage: FOR 2 CYCLES
     Dates: start: 20041030

REACTIONS (1)
  - FEELING COLD [None]
